FAERS Safety Report 10423500 (Version 1)
Quarter: 2014Q3

REPORT INFORMATION
  Report Type: Spontaneous
  Country: US (occurrence: None)
  Receive Date: 20140731
  Receipt Date: 20140731
  Transmission Date: 20150326
  Serious: Yes (Other)
  Sender: FDA-Public Use
  Company Number: JHP201400114

PATIENT
  Sex: Female

DRUGS (1)
  1. CORTISPORIN [Suspect]
     Active Substance: BACITRACIN ZINC\HYDROCORTISONE\NEOMYCIN SULFATE\POLYMYXIN B SULFATE
     Indication: EAR INFECTION
     Dosage: 4X/DAY X 10 DAYS INTO EAR, AURICULAR (OTIC)
     Dates: start: 201403, end: 201403

REACTIONS (1)
  - Deafness [None]

NARRATIVE: CASE EVENT DATE: 201403
